FAERS Safety Report 14942223 (Version 7)
Quarter: 2019Q2

REPORT INFORMATION
  Report Type: Spontaneous
  Country: US (occurrence: US)
  Receive Date: 20180528
  Receipt Date: 20190426
  Transmission Date: 20190711
  Serious: No
  Sender: FDA-Public Use
  Company Number: US-BRISTOL-MYERS SQUIBB COMPANY-BMS-2018-048998

PATIENT
  Sex: Female
  Weight: 88.9 kg

DRUGS (1)
  1. ORENCIA [Suspect]
     Active Substance: ABATACEPT
     Indication: RHEUMATOID ARTHRITIS
     Dosage: 125 MG, QWK
     Route: 058
     Dates: start: 201801

REACTIONS (7)
  - Swelling [Unknown]
  - Cough [Unknown]
  - Drug ineffective [Unknown]
  - Fatigue [Unknown]
  - Upper respiratory tract infection [Unknown]
  - Headache [Unknown]
  - Nasopharyngitis [Unknown]
